FAERS Safety Report 13593889 (Version 1)
Quarter: 2017Q2

REPORT INFORMATION
  Report Type: Spontaneous
  Country: US (occurrence: US)
  Receive Date: 20170530
  Receipt Date: 20170530
  Transmission Date: 20170830
  Serious: Yes (Other)
  Sender: FDA-Public Use
  Company Number: US-PFIZER INC-2017232413

PATIENT
  Age: 59 Year
  Sex: Female
  Weight: 84.37 kg

DRUGS (1)
  1. EFFEXOR XR [Suspect]
     Active Substance: VENLAFAXINE HYDROCHLORIDE
     Indication: DEPRESSION
     Dosage: 150 MG, DAILY
     Route: 048

REACTIONS (5)
  - Cerebrovascular accident [Unknown]
  - Fatigue [Unknown]
  - Malaise [Unknown]
  - Hypoacusis [Unknown]
  - Mental impairment [Unknown]

NARRATIVE: CASE EVENT DATE: 2015
